FAERS Safety Report 16250299 (Version 1)
Quarter: 2019Q2

REPORT INFORMATION
  Report Type: Spontaneous
  Country: US (occurrence: US)
  Receive Date: 20190429
  Receipt Date: 20190429
  Transmission Date: 20190711
  Serious: No
  Sender: FDA-Public Use
  Company Number: US-PFIZER INC-2019174254

PATIENT
  Age: 38 Year
  Sex: Female
  Weight: 92.8 kg

DRUGS (1)
  1. GABAPENTIN. [Suspect]
     Active Substance: GABAPENTIN
     Indication: FIBROMYALGIA
     Dosage: 300 MG, 2X/DAY
     Route: 048

REACTIONS (3)
  - Discomfort [Unknown]
  - Insomnia [Unknown]
  - Drug ineffective for unapproved indication [Unknown]
